FAERS Safety Report 17605390 (Version 1)
Quarter: 2020Q1

REPORT INFORMATION
  Report Type: Spontaneous
  Country: US (occurrence: US)
  Receive Date: 20200331
  Receipt Date: 20200331
  Transmission Date: 20200409
  Serious: Yes (Hospitalization)
  Sender: FDA-Public Use
  Company Number: None

PATIENT
  Age: 61 Year
  Sex: Male

DRUGS (19)
  1. SIMVASTATIN. [Concomitant]
     Active Substance: SIMVASTATIN
  2. BASAGLAR [Concomitant]
     Active Substance: INSULIN GLARGINE
  3. NIFEDIPINE. [Concomitant]
     Active Substance: NIFEDIPINE
  4. NOVOLOG [Concomitant]
     Active Substance: INSULIN ASPART
  5. CETIRIZINE [Concomitant]
     Active Substance: CETIRIZINE HYDROCHLORIDE
  6. LINZESS [Concomitant]
     Active Substance: LINACLOTIDE
  7. CELLCEPT [Suspect]
     Active Substance: MYCOPHENOLATE MOFETIL\MYCOPHENOLATE MOFETIL HYDROCHLORIDE
     Indication: LIVER TRANSPLANT
     Route: 048
     Dates: start: 20170203
  8. DEXILANT [Concomitant]
     Active Substance: DEXLANSOPRAZOLE
  9. AMODARONE [Concomitant]
  10. CLONIDINE. [Concomitant]
     Active Substance: CLONIDINE
  11. METOPROLOL TARTRATE. [Concomitant]
     Active Substance: METOPROLOL TARTRATE
  12. EZETIMIBE. [Concomitant]
     Active Substance: EZETIMIBE
  13. AUTOSHIELD [Concomitant]
  14. CALC ACETATE [Concomitant]
     Active Substance: CALCIUM ACETATE
  15. DOK [Concomitant]
     Active Substance: DOCUSATE SODIUM
  16. ELIQUIS [Concomitant]
     Active Substance: APIXABAN
  17. HYDRALAZINE [Concomitant]
     Active Substance: HYDRALAZINE HYDROCHLORIDE
  18. ONETOUCH [Concomitant]
  19. LORATADINE. [Concomitant]
     Active Substance: LORATADINE

REACTIONS (1)
  - Infection [None]

NARRATIVE: CASE EVENT DATE: 20200312
